FAERS Safety Report 9997349 (Version 4)
Quarter: 2014Q2

REPORT INFORMATION
  Report Type: Spontaneous
  Country: BE (occurrence: BE)
  Receive Date: 20140311
  Receipt Date: 20140521
  Transmission Date: 20141212
  Serious: Yes (Death, Other)
  Sender: FDA-Public Use
  Company Number: BE-JNJFOC-20140305806

PATIENT
  Age: 76 Year
  Sex: Female
  Weight: 74 kg

DRUGS (11)
  1. XARELTO [Suspect]
     Indication: ATRIAL FIBRILLATION
     Route: 048
     Dates: start: 20131216, end: 20140112
  2. XARELTO [Suspect]
     Indication: CEREBROVASCULAR ACCIDENT PROPHYLAXIS
     Route: 048
     Dates: start: 20131216, end: 20140112
  3. LEDERTREXATE [Interacting]
     Indication: PSORIATIC ARTHROPATHY
     Route: 042
  4. CLOPIDOGREL [Concomitant]
     Route: 065
     Dates: end: 20140110
  5. METFORMAX [Concomitant]
     Route: 065
  6. EMCONCOR [Concomitant]
     Route: 048
  7. DIGITALIS [Concomitant]
     Route: 065
  8. LANITOP [Concomitant]
     Route: 065
     Dates: start: 20131216, end: 20140112
  9. CITALOPRAM [Concomitant]
     Route: 065
  10. CLEXANE [Concomitant]
     Indication: ATRIAL FIBRILLATION
     Route: 058
     Dates: start: 20131212, end: 20131216
  11. ZANTAC [Concomitant]
     Route: 048

REACTIONS (8)
  - Agranulocytosis [Fatal]
  - Staphylococcal sepsis [Fatal]
  - Pancytopenia [Unknown]
  - Bone marrow failure [Unknown]
  - Platelet transfusion [Unknown]
  - Drug interaction [Unknown]
  - Pyrexia [Unknown]
  - Packed red blood cell transfusion [Unknown]
